FAERS Safety Report 9217799 (Version 2)
Quarter: 2013Q3

REPORT INFORMATION
  Report Type: Spontaneous
  Country: US (occurrence: US)
  Receive Date: 20130408
  Receipt Date: 20130705
  Transmission Date: 20140515
  Serious: Yes (Hospitalization)
  Sender: FDA-Public Use
  Company Number: US-ELI_LILLY_AND_COMPANY-US201304000105

PATIENT
  Sex: Female

DRUGS (7)
  1. FORTEO [Suspect]
     Indication: SPINAL FRACTURE
     Dosage: 20 UG, QD
     Route: 058
     Dates: start: 20110524, end: 20130524
  2. FORTEO [Suspect]
     Indication: OSTEOPOROSIS
  3. COMBIVENT [Concomitant]
  4. SYMBICORT [Concomitant]
  5. LISINOPRIL [Concomitant]
  6. FUROSEMIDE [Concomitant]
  7. NEXIUM                             /01479302/ [Concomitant]

REACTIONS (5)
  - Atrioventricular block [Recovered/Resolved]
  - Pneumonia [Recovered/Resolved]
  - Fall [Unknown]
  - Off label use [Unknown]
  - Facial bones fracture [Unknown]
